FAERS Safety Report 14147962 (Version 12)
Quarter: 2019Q1

REPORT INFORMATION
  Report Type: Spontaneous
  Country: CA (occurrence: CA)
  Receive Date: 20171101
  Receipt Date: 20190129
  Transmission Date: 20190417
  Serious: Yes (Hospitalization)
  Sender: FDA-Public Use
  Company Number: CA-ROCHE-2014361

PATIENT
  Age: 82 Year
  Sex: Female

DRUGS (5)
  1. XOLAIR [Suspect]
     Active Substance: OMALIZUMAB
     Indication: ASTHMA
     Route: 058
     Dates: start: 20060721
  2. XOLAIR [Suspect]
     Active Substance: OMALIZUMAB
     Route: 058
     Dates: start: 20180130
  3. XOLAIR [Suspect]
     Active Substance: OMALIZUMAB
     Route: 058
     Dates: start: 201810
  4. XOLAIR [Suspect]
     Active Substance: OMALIZUMAB
     Dosage: UNK
     Route: 058
     Dates: start: 20171128
  5. XOLAIR [Suspect]
     Active Substance: OMALIZUMAB
     Route: 058
     Dates: start: 20171227

REACTIONS (9)
  - Glomerulonephritis chronic [Unknown]
  - Dizziness [Unknown]
  - Gait disturbance [Unknown]
  - Back pain [Recovered/Resolved]
  - Vaginal infection [Unknown]
  - Cystitis [Recovered/Resolved]
  - Kidney infection [Unknown]
  - Procedural pain [Unknown]
  - Blood urine present [Unknown]

NARRATIVE: CASE EVENT DATE: 201712
